FAERS Safety Report 21191292 (Version 1)
Quarter: 2022Q3

REPORT INFORMATION
  Report Type: Spontaneous
  Country: IN (occurrence: IN)
  Receive Date: 20220809
  Receipt Date: 20220809
  Transmission Date: 20221026
  Serious: Yes (Hospitalization)
  Sender: FDA-Public Use
  Company Number: IN-AMERICAN REGENT INC-2022002242

PATIENT
  Age: 19 Year
  Sex: Female

DRUGS (2)
  1. FERINJECT [Suspect]
     Active Substance: FERRIC CARBOXYMALTOSE
     Indication: Anaemia
     Dosage: IN 250 MILLILITRE NORMAL SALINE (1000 MG)
  2. FERINJECT [Suspect]
     Active Substance: FERRIC CARBOXYMALTOSE
     Dosage: IN 250 MILLILITRE NORMAL SALINE, SECOND OR THIRD DOSE (1000 MG)

REACTIONS (9)
  - Oropharyngeal discomfort [Recovered/Resolved]
  - Generalised oedema [Recovered/Resolved]
  - Swelling of eyelid [Recovered/Resolved]
  - Ear swelling [Recovered/Resolved]
  - Erythema [Recovered/Resolved]
  - Dyspnoea [Recovered/Resolved]
  - Rash [Recovered/Resolved]
  - Heart rate increased [Recovered/Resolved]
  - Pruritus [Recovered/Resolved]
